FAERS Safety Report 8240123-2 (Version None)
Quarter: 2012Q1

REPORT INFORMATION
  Report Type: 
  Country: None (occurrence: None)
  Receive Date: 20120328
  Receipt Date: 20120323
  Transmission Date: 20120608
  Serious: No
  Sender: FDA-Public Use
  Company Number: CA-JNJFOC-20120312600

PATIENT
  Sex: Female
  Weight: 114.31 kg

DRUGS (3)
  1. REMICADE [Suspect]
     Indication: PSORIATIC ARTHROPATHY
     Route: 042
     Dates: start: 20110614
  2. REMICADE [Suspect]
     Indication: PSORIASIS
     Route: 042
     Dates: start: 20110614
  3. ANTIBIOTIC NOS [Suspect]
     Indication: PHARYNGITIS
     Route: 065

REACTIONS (3)
  - PHARYNGITIS [None]
  - FUNGAL INFECTION [None]
  - MALAISE [None]
